FAERS Safety Report 4352373-6 (Version None)
Quarter: 2004Q2

REPORT INFORMATION
  Report Type: 
  Country: None (occurrence: None)
  Receive Date: 20040423
  Receipt Date: 20040224
  Transmission Date: 20050107
  Serious: Yes (Other)
  Sender: FDA-Public Use
  Company Number: CIP04000386

PATIENT
  Age: 54 Year
  Sex: Female

DRUGS (5)
  1. MACROBID [Suspect]
     Indication: URINARY TRACT INFECTION
     Dosage: 100 MG TWICE DAILY, ORAL
     Route: 048
     Dates: start: 20040211, end: 20040214
  2. LOTREL [Concomitant]
  3. HYDROCHLOROTHIAZIDE [Concomitant]
  4. EFFEXOR [Concomitant]
  5. SYNTHROID [Concomitant]

REACTIONS (10)
  - CHILLS [None]
  - DECREASED APPETITE [None]
  - FATIGUE [None]
  - HEADACHE [None]
  - HEPATITIS [None]
  - JAUNDICE [None]
  - OCULAR ICTERUS [None]
  - PAIN [None]
  - PYREXIA [None]
  - WEIGHT DECREASED [None]
